FAERS Safety Report 12440836 (Version 2)
Quarter: 2016Q3

REPORT INFORMATION
  Report Type: Spontaneous
  Country: GB (occurrence: GB)
  Receive Date: 20160607
  Receipt Date: 20160701
  Transmission Date: 20161109
  Serious: Yes (Hospitalization, Other)
  Sender: FDA-Public Use
  Company Number: GB-ROCHE-1665799

PATIENT
  Sex: Female

DRUGS (1)
  1. HERCEPTIN [Suspect]
     Active Substance: TRASTUZUMAB
     Indication: PRODUCT USED FOR UNKNOWN INDICATION
     Route: 058

REACTIONS (15)
  - Diarrhoea [Unknown]
  - Lethargy [Unknown]
  - Malaise [Unknown]
  - Tremor [Unknown]
  - Constipation [Unknown]
  - Multiple sclerosis [Not Recovered/Not Resolved]
  - Neuropathy peripheral [Unknown]
  - Arthralgia [Not Recovered/Not Resolved]
  - Pain in extremity [Not Recovered/Not Resolved]
  - Dry skin [Unknown]
  - Joint stiffness [Unknown]
  - Fatigue [Unknown]
  - Sepsis [Unknown]
  - Pain [Unknown]
  - Musculoskeletal stiffness [Unknown]
